FAERS Safety Report 12928226 (Version 1)
Quarter: 2016Q4

REPORT INFORMATION
  Report Type: Spontaneous
  Country: US (occurrence: US)
  Receive Date: 20161110
  Receipt Date: 20161110
  Transmission Date: 20170207
  Serious: No
  Sender: FDA-Public Use
  Company Number: None

PATIENT

DRUGS (2)
  1. GLYCOPYRROLATE. [Suspect]
     Active Substance: GLYCOPYRROLATE
     Dosage: INJECTABLE; IM OR IV; SINGLE DOSE VIAL; 2 ML
     Route: 030
  2. NALOXONE HCL [Suspect]
     Active Substance: NALOXONE HYDROCHLORIDE
     Dosage: INJECTABLE; IV, IM OR SC; VIAL
     Route: 042

REACTIONS (1)
  - Product label confusion [None]
